FAERS Safety Report 20740860 (Version 2)
Quarter: 2022Q3

REPORT INFORMATION
  Report Type: Report from Study
  Country: US (occurrence: US)
  Receive Date: 20220422
  Receipt Date: 20220701
  Transmission Date: 20221027
  Serious: Yes (Other)
  Sender: FDA-Public Use
  Company Number: US-NOVARTISTESTPH-NVSC2022US092616

PATIENT
  Sex: Female

DRUGS (2)
  1. COSENTYX [Suspect]
     Active Substance: SECUKINUMAB
     Indication: Psoriasis
     Dosage: 300 MG, QMO
     Route: 058
     Dates: start: 201704
  2. COSENTYX [Suspect]
     Active Substance: SECUKINUMAB
     Dosage: LAST DOSE ADMINISTERED
     Route: 065
     Dates: start: 20210926

REACTIONS (6)
  - Psoriatic arthropathy [Unknown]
  - Gait disturbance [Unknown]
  - Ligament sprain [Unknown]
  - Peripheral swelling [Unknown]
  - Pruritus [Unknown]
  - Condition aggravated [Unknown]
